FAERS Safety Report 8256501-1 (Version None)
Quarter: 2012Q2

REPORT INFORMATION
  Report Type: 
  Country: None (occurrence: None)
  Receive Date: 20120403
  Receipt Date: 20120329
  Transmission Date: 20120825
  Serious: No
  Sender: FDA-Public Use
  Company Number: US-PFIZER INC-2012080775

PATIENT

DRUGS (2)
  1. LYRICA [Suspect]
     Dosage: 150 MG, UNK
  2. LYRICA [Suspect]
     Dosage: 75 MG, UNK

REACTIONS (3)
  - DIZZINESS [None]
  - AMNESIA [None]
  - WEIGHT INCREASED [None]
